FAERS Safety Report 8639343 (Version 4)
Quarter: 2013Q2

REPORT INFORMATION
  Report Type: Spontaneous
  Country: US (occurrence: None)
  Receive Date: 20120615
  Receipt Date: 20130506
  Transmission Date: 20140414
  Serious: Yes (Death)
  Sender: FDA-Public Use
  Company Number: ADR-2012-01106

PATIENT
  Sex: Male
  Weight: 14.97 kg

DRUGS (3)
  1. LIORESAL [Suspect]
     Indication: MUSCLE SPASTICITY
     Dosage: 225 MCG/DAY
  2. LIORESAL [Suspect]
     Indication: BRAIN INJURY
     Dosage: 225 MCG/DAY
  3. LIORESAL [Suspect]
     Indication: HEAD INJURY
     Dosage: 225 MCG/DAY

REACTIONS (27)
  - Brain injury [None]
  - Hypoxic-ischaemic encephalopathy [None]
  - Unresponsive to stimuli [None]
  - Pneumonia [None]
  - Bacterial infection [None]
  - Hyperpyrexia [None]
  - Dehydration [None]
  - Hyponatraemia [None]
  - Hyperchloraemia [None]
  - Haemophilus sepsis [None]
  - Pneumonia bacterial [None]
  - Accidental death [None]
  - Pulmonary oedema [None]
  - Blood potassium increased [None]
  - Blood glucose decreased [None]
  - Blood urea increased [None]
  - Staphylococcus test positive [None]
  - Drug screen positive [None]
  - Cerebral atrophy [None]
  - Hydrocephalus [None]
  - Subdural haematoma [None]
  - Subarachnoid haemorrhage [None]
  - Scar [None]
  - Keloid scar [None]
  - Blood caffeine increased [None]
  - Pulmonary oedema [None]
  - Near drowning [None]
